FAERS Safety Report 19934483 (Version 1)
Quarter: 2021Q4

REPORT INFORMATION
  Report Type: Spontaneous
  Country: US (occurrence: US)
  Receive Date: 20211008
  Receipt Date: 20211008
  Transmission Date: 20220303
  Serious: Yes (Hospitalization)
  Sender: FDA-Public Use
  Company Number: US-GLAXOSMITHKLINE-US2021206157

PATIENT
  Age: 65 Year
  Sex: Female

DRUGS (12)
  1. ADVAIR DISKUS [Suspect]
     Active Substance: FLUTICASONE PROPIONATE\SALMETEROL XINAFOATE
     Indication: Asthma
     Dosage: 2 PUFF(S), BID, 250/50
     Dates: start: 20130101
  2. ACYCLOVIR [Suspect]
     Active Substance: ACYCLOVIR
     Indication: Infection
     Dosage: 200 MG, QD
  3. SULFAMERAZINE SODIUM\TRIMETHOPRIM [Suspect]
     Active Substance: SULFAMERAZINE SODIUM\TRIMETHOPRIM
     Indication: Infection
     Dosage: 400/80 2 TIMES PER WEEK
  4. PRAVASTATIN SODIUM [Suspect]
     Active Substance: PRAVASTATIN SODIUM
     Indication: Product used for unknown indication
     Dosage: 10 MG, QD AT BED TIME
  5. TACROLIMUS [Suspect]
     Active Substance: TACROLIMUS
     Indication: Product used for unknown indication
     Dosage: 2 DF, BID (IN THE AM AND 2 IN THE PM)
     Dates: start: 20160314
  6. PREDNISONE [Suspect]
     Active Substance: PREDNISONE
     Indication: Immune system disorder
     Dosage: 5 MG, QD
     Dates: start: 20111001
  7. AZITHROMYCIN ANHYDROUS [Suspect]
     Active Substance: AZITHROMYCIN ANHYDROUS
     Indication: Infection
     Dosage: 500 MG, QD
  8. METOPROLOL [Suspect]
     Active Substance: METOPROLOL
     Indication: Hypertension
     Dosage: 25 MG, BID
  9. PRAMIPEXOLE [Suspect]
     Active Substance: PRAMIPEXOLE
     Indication: Restless legs syndrome
     Dosage: 2 DF, QD (TWO TABLETS EVERY NIGHT)
  10. VELTASSA [Concomitant]
     Active Substance: PATIROMER
     Indication: Hypokalaemia
     Dosage: UNK, QD
     Dates: start: 20201101
  11. RAYALDEE ER [Concomitant]
     Indication: Hypothyroidism
     Dosage: 30 MG, QD
     Dates: start: 20201001
  12. ALLOPURINOL [Concomitant]
     Active Substance: ALLOPURINOL
     Indication: Gout
     Dosage: 100 MG, BID
     Dates: start: 20201001

REACTIONS (3)
  - Lung transplant [Unknown]
  - Product use issue [Unknown]
  - Product dose omission issue [Unknown]

NARRATIVE: CASE EVENT DATE: 20160314
